FAERS Safety Report 25840860 (Version 1)
Quarter: 2025Q3

REPORT INFORMATION
  Report Type: Spontaneous
  Country: US (occurrence: US)
  Receive Date: 20250924
  Receipt Date: 20250924
  Transmission Date: 20251020
  Serious: No
  Sender: CELLTRION
  Company Number: US-CELLTRION INC.-2025US028439

PATIENT

DRUGS (12)
  1. STEQEYMA [Suspect]
     Active Substance: USTEKINUMAB-STBA
     Indication: Crohn^s disease
     Dosage: 90 MG, Q4WEEKS
     Route: 058
     Dates: start: 20250625, end: 20250814
  2. ZOLPIDEM [Concomitant]
     Active Substance: ZOLPIDEM TARTRATE
  3. OMEPRAZOLE [Concomitant]
     Active Substance: OMEPRAZOLE
  4. AIMOVIG [Concomitant]
     Active Substance: ERENUMAB-AOOE
  5. OCTREOTIDE [Concomitant]
     Active Substance: OCTREOTIDE
  6. TRAMADOL [Concomitant]
     Active Substance: TRAMADOL
  7. SIMVASTATIN [Concomitant]
     Active Substance: SIMVASTATIN
  8. MOUNJARO [Concomitant]
     Active Substance: TIRZEPATIDE
  9. VALACYCLOVIR HYDROCHLORIDE [Concomitant]
     Active Substance: VALACYCLOVIR HYDROCHLORIDE
  10. CYCLOBENZAPRINE [Concomitant]
     Active Substance: CYCLOBENZAPRINE
  11. TOPIRAMATE [Concomitant]
     Active Substance: TOPIRAMATE
  12. FLUOXETINE [Concomitant]
     Active Substance: FLUOXETINE HYDROCHLORIDE

REACTIONS (6)
  - Pain [Recovering/Resolving]
  - Headache [Recovering/Resolving]
  - Rash pruritic [Recovering/Resolving]
  - Fatigue [Recovering/Resolving]
  - Product dose omission issue [Unknown]
  - Therapy cessation [Unknown]

NARRATIVE: CASE EVENT DATE: 20250626
